FAERS Safety Report 5835489-4 (Version None)
Quarter: 2008Q3

REPORT INFORMATION
  Report Type: 
  Country: None (occurrence: None)
  Receive Date: 20080806
  Receipt Date: 20080731
  Transmission Date: 20090109
  Serious: Yes (Hospitalization)
  Sender: FDA-Public Use
  Company Number: US-KINGPHARMUSA00001-K200800900

PATIENT

DRUGS (1)
  1. AVINZA [Suspect]
     Indication: PAIN
     Dosage: 180 MG, QD
     Route: 048
     Dates: start: 20080530, end: 20080603

REACTIONS (2)
  - DEHYDRATION [None]
  - VOMITING [None]
